FAERS Safety Report 21841238 (Version 3)
Quarter: 2023Q1

REPORT INFORMATION
  Report Type: Other
  Country: US (occurrence: None)
  Receive Date: 20230110
  Receipt Date: 20230303
  Transmission Date: 20230418
  Serious: No
  Sender: FDA-Public Use
  Company Number: US-ROCHE-3257790

PATIENT
  Age: 54 Year
  Sex: Female
  Weight: 63.560 kg

DRUGS (5)
  1. OCREVUS [Suspect]
     Active Substance: OCRELIZUMAB
     Indication: Primary progressive multiple sclerosis
     Dosage: NEXT INFUSION ON: 11/JAN/2018
     Route: 042
     Dates: start: 20171228
  2. OCREVUS [Suspect]
     Active Substance: OCRELIZUMAB
     Dosage: 06-JUL-2022, 28-DEC-2017, 11-JAN-2018, 28-JUN-2018, 24/JAN/2019, 13/JAN/2020, 25/JUN/2020, 19/JAN/20
     Route: 042
     Dates: start: 20180628
  3. OCREVUS [Suspect]
     Active Substance: OCRELIZUMAB
     Route: 042
  4. OCREVUS [Suspect]
     Active Substance: OCRELIZUMAB
     Route: 042
  5. TYSABRI [Concomitant]
     Active Substance: NATALIZUMAB

REACTIONS (3)
  - COVID-19 [Recovered/Resolved]
  - Incontinence [Not Recovered/Not Resolved]
  - Stress [Not Recovered/Not Resolved]

NARRATIVE: CASE EVENT DATE: 20221201
